FAERS Safety Report 10905470 (Version 1)
Quarter: 2015Q1

REPORT INFORMATION
  Report Type: Spontaneous
  Country: FR (occurrence: FR)
  Receive Date: 20150311
  Receipt Date: 20150311
  Transmission Date: 20150721
  Serious: Yes (Other)
  Sender: FDA-Public Use
  Company Number: FR-JNJFOC-20150219804

PATIENT

DRUGS (3)
  1. DOXORUBICIN HYDROCHLORIDE. [Suspect]
     Active Substance: DOXORUBICIN HYDROCHLORIDE
     Indication: SMALL CELL LUNG CANCER RECURRENT
     Route: 042
  2. CYCLOPHOSPHAMIDE. [Suspect]
     Active Substance: CYCLOPHOSPHAMIDE
     Indication: SMALL CELL LUNG CANCER RECURRENT
     Dosage: DOSE-1000 G/M2
     Route: 065
  3. VINCRISTINE [Suspect]
     Active Substance: VINCRISTINE
     Indication: SMALL CELL LUNG CANCER RECURRENT
     Route: 065

REACTIONS (10)
  - Neutropenia [Unknown]
  - Anaemia [Unknown]
  - Product use issue [Unknown]
  - Toxicity to various agents [Unknown]
  - Asthenia [Unknown]
  - Nausea [Unknown]
  - Thrombocytopenia [Unknown]
  - Vomiting [Unknown]
  - Haematotoxicity [Unknown]
  - Febrile bone marrow aplasia [Unknown]
